FAERS Safety Report 6539373-2 (Version None)
Quarter: 2010Q1

REPORT INFORMATION
  Report Type: 
  Country: None (occurrence: None)
  Receive Date: 20100115
  Receipt Date: 20100104
  Transmission Date: 20100710
  Serious: Yes (Death)
  Sender: FDA-Public Use
  Company Number: US-PFIZER INC-2010000552

PATIENT
  Age: 29 Year
  Sex: Male

DRUGS (3)
  1. SERTRALINE HCL [Suspect]
     Route: 048
  2. ACETAMINOPHEN/DIPHENHYDRAMINE [Suspect]
     Route: 048
  3. BUTALBITAL ACETAMINOPHEN AND CAFFEINE [Suspect]
     Route: 048

REACTIONS (3)
  - COMPLETED SUICIDE [None]
  - DRUG TOXICITY [None]
  - MYOCARDIAL INFARCTION [None]
